FAERS Safety Report 9916042 (Version 2)
Quarter: 2014Q1

REPORT INFORMATION
  Report Type: Spontaneous
  Country: FR (occurrence: FR)
  Receive Date: 20140221
  Receipt Date: 20140320
  Transmission Date: 20141002
  Serious: Yes (Disabling)
  Sender: FDA-Public Use
  Company Number: FR-BAYER-2014-025389

PATIENT
  Age: 38 Year
  Sex: Female
  Weight: 56 kg

DRUGS (2)
  1. MIRENA [Suspect]
     Indication: CONTRACEPTION
     Dosage: 20 MCG/24HR, CONT
     Route: 015
     Dates: start: 20090617
  2. MIRENA [Suspect]
     Indication: MIGRAINE

REACTIONS (7)
  - Retinal vein thrombosis [Not Recovered/Not Resolved]
  - Breast disorder female [None]
  - Amenorrhoea [None]
  - Syncope [None]
  - Procedural pain [None]
  - Complication of device insertion [None]
  - Device difficult to use [None]
